FAERS Safety Report 21294873 (Version 1)
Quarter: 2022Q3

REPORT INFORMATION
  Report Type: Spontaneous
  Country: US (occurrence: US)
  Receive Date: 20220905
  Receipt Date: 20220905
  Transmission Date: 20221027
  Serious: No
  Sender: FDA-Public Use
  Company Number: US-ORGANON-O2208USA002335

PATIENT
  Sex: Male

DRUGS (2)
  1. PREGNYL [Suspect]
     Active Substance: CHORIOGONADOTROPIN ALFA
     Indication: Testicular failure
     Dosage: PREGNYL 10000 UNIT MDV60, MIX 10,000 UNITS WITH 2 ML DILUENT AND INJECT 0.4 ML SUBCUTANEOUSLY 3 TIME
     Route: 030
     Dates: start: 20210709
  2. STERILE WATER [Suspect]
     Active Substance: WATER
     Dosage: UNK
     Dates: start: 20210709

REACTIONS (1)
  - Product dose omission issue [Unknown]
